FAERS Safety Report 5377605-7 (Version None)
Quarter: 2007Q3

REPORT INFORMATION
  Report Type: 
  Country: None (occurrence: None)
  Receive Date: 20070703
  Receipt Date: 20070625
  Transmission Date: 20080115
  Serious: Yes (Death, Other)
  Sender: FDA-Public Use
  Company Number: CN-PFIZER INC-2007041828

PATIENT
  Age: 52 Year
  Sex: Male

DRUGS (2)
  1. DIFLUCAN [Suspect]
     Indication: CANDIDIASIS
     Dosage: FREQ:INTERVAL : EVERY DAY
     Dates: start: 20070101, end: 20070101
  2. VFEND [Suspect]
     Indication: CANDIDIASIS
     Dosage: FREQ:INTERVAL : EVERY DAY
     Route: 048
     Dates: start: 20070101, end: 20070101

REACTIONS (2)
  - DRUG INEFFECTIVE [None]
  - FUNGAL INFECTION [None]
